FAERS Safety Report 17821778 (Version 3)
Quarter: 2020Q3

REPORT INFORMATION
  Report Type: Report from Study
  Country: CO (occurrence: CO)
  Receive Date: 20200525
  Receipt Date: 20200708
  Transmission Date: 20201102
  Serious: Yes (Other)
  Sender: FDA-Public Use
  Company Number: CO-BRISTOL-MYERS SQUIBB COMPANY-BMS-2020-012599

PATIENT
  Age: 62 Year
  Sex: Female

DRUGS (1)
  1. ABATACEPT [Suspect]
     Active Substance: ABATACEPT
     Indication: RHEUMATOID ARTHRITIS
     Dosage: 125 MILLIGRAM, QWK
     Route: 058
     Dates: start: 20191016, end: 20200606

REACTIONS (14)
  - Myalgia [Recovering/Resolving]
  - General physical health deterioration [Recovering/Resolving]
  - Vertigo [Recovering/Resolving]
  - Arthralgia [Recovering/Resolving]
  - Abdominal pain upper [Recovering/Resolving]
  - Nausea [Recovering/Resolving]
  - Abdominal pain [Recovering/Resolving]
  - Drug ineffective [Unknown]
  - Oedema peripheral [Recovering/Resolving]
  - Dizziness [Recovering/Resolving]
  - Chest pain [Recovered/Resolved]
  - Pain in extremity [Recovering/Resolving]
  - Loss of personal independence in daily activities [Unknown]
  - Gastrooesophageal reflux disease [Recovering/Resolving]

NARRATIVE: CASE EVENT DATE: 20200208
